FAERS Safety Report 4805712-3 (Version None)
Quarter: 2005Q4

REPORT INFORMATION
  Report Type: 
  Country: None (occurrence: None)
  Receive Date: 20051021
  Receipt Date: 20051012
  Transmission Date: 20060501
  Serious: Yes (Hospitalization, Other)
  Sender: FDA-Public Use
  Company Number: US-JNJFOC-20051002675

PATIENT
  Sex: Male
  Weight: 68.04 kg

DRUGS (6)
  1. REMICADE [Suspect]
     Indication: RHEUMATOID ARTHRITIS
     Route: 042
  2. METHOTREXATE [Concomitant]
     Dosage: 0.5
  3. RELAFEN [Concomitant]
  4. FOLIC ACID [Concomitant]
  5. PLAVIX [Concomitant]
  6. CALCIUM GLUCONATE [Concomitant]

REACTIONS (1)
  - MENINGITIS LISTERIA [None]
